FAERS Safety Report 5094440-8 (Version None)
Quarter: 2006Q3

REPORT INFORMATION
  Report Type: 
  Country: None (occurrence: None)
  Receive Date: 20060731
  Receipt Date: 20060424
  Transmission Date: 20061208
  Serious: No
  Sender: FDA-Public Use
  Company Number: 2006PV012690

PATIENT
  Age: 67 Year
  Sex: Male
  Weight: 106.5953 kg

DRUGS (4)
  1. BYETTA [Suspect]
     Indication: DIABETES MELLITUS NON-INSULIN-DEPENDENT
     Dosage: 5 MCG;BID;SC
     Route: 058
     Dates: start: 20060405
  2. AMARYL [Concomitant]
  3. ACTOS/USA/GLUCOPHAGE ^BRISTOL MYERS SQUIBB^ [Concomitant]
  4. GLUCOPHAGE [Concomitant]

REACTIONS (4)
  - BLOOD GLUCOSE DECREASED [None]
  - BLOOD GLUCOSE INCREASED [None]
  - TREMOR [None]
  - WEIGHT DECREASED [None]
